FAERS Safety Report 10446702 (Version 2)
Quarter: 2014Q3

REPORT INFORMATION
  Report Type: Report from Study
  Country: NL (occurrence: NL)
  Receive Date: 20140911
  Receipt Date: 20140911
  Transmission Date: 20150326
  Serious: Yes (Other)
  Sender: FDA-Public Use
  Company Number: NL-BAYER-2013-133682

PATIENT
  Age: 29 Year
  Sex: Female

DRUGS (4)
  1. BETAFERON [Suspect]
     Active Substance: INTERFERON BETA-1B
     Dosage: UNK
  2. BETAFERON [Suspect]
     Active Substance: INTERFERON BETA-1B
     Dosage: 0.75 ML, UNK
     Dates: start: 201311, end: 201311
  3. BETAFERON [Suspect]
     Active Substance: INTERFERON BETA-1B
     Dosage: 125 ?G, QOD
     Dates: start: 201311
  4. BETAFERON [Suspect]
     Active Substance: INTERFERON BETA-1B
     Dosage: 125 ?G, QOD

REACTIONS (4)
  - Disease progression [None]
  - Influenza [Recovered/Resolved]
  - Influenza [Not Recovered/Not Resolved]
  - Myalgia [Not Recovered/Not Resolved]

NARRATIVE: CASE EVENT DATE: 20131030
